FAERS Safety Report 5759781-7 (Version None)
Quarter: 2008Q2

REPORT INFORMATION
  Report Type: 
  Country: None (occurrence: None)
  Receive Date: 20080605
  Receipt Date: 20080526
  Transmission Date: 20081010
  Serious: Yes (Hospitalization)
  Sender: FDA-Public Use
  Company Number: B0522648A

PATIENT
  Age: 88 Year
  Sex: Male

DRUGS (8)
  1. ARIXTRA [Suspect]
     Indication: DEEP VEIN THROMBOSIS
     Dosage: 7.5MG PER DAY
     Route: 058
     Dates: start: 20080412, end: 20080418
  2. ASPIRIN [Suspect]
     Indication: DRUG USE FOR UNKNOWN INDICATION
     Dosage: 75MG PER DAY
     Route: 048
     Dates: end: 20080418
  3. SEROPLEX [Concomitant]
     Dosage: 10MG PER DAY
     Route: 048
  4. ARICEPT [Concomitant]
     Dosage: 5MG PER DAY
     Route: 065
     Dates: end: 20080421
  5. SELOKEN [Concomitant]
     Dosage: 10MG IN THE MORNING
     Route: 065
  6. FUROSEMIDE [Concomitant]
     Dosage: 20MG IN THE MORNING
     Route: 065
  7. UVEDOSE [Concomitant]
     Dosage: 1UNIT EVERY 3 MONTHS
     Route: 065
  8. DI-ANTALVIC [Concomitant]
     Dosage: 1TAB THREE TIMES PER DAY
     Route: 048

REACTIONS (7)
  - ANAEMIA MACROCYTIC [None]
  - BILIRUBIN CONJUGATED INCREASED [None]
  - BLOOD BILIRUBIN INCREASED [None]
  - FALL [None]
  - GAMMA-GLUTAMYLTRANSFERASE INCREASED [None]
  - HAEMATOMA [None]
  - RENAL FAILURE [None]
